FAERS Safety Report 4695592-1 (Version None)
Quarter: 2005Q2

REPORT INFORMATION
  Report Type: 
  Country: None (occurrence: None)
  Receive Date: 20050524
  Receipt Date: 20050516
  Transmission Date: 20051028
  Serious: Yes (Other)
  Sender: FDA-Public Use
  Company Number: 2005UW07520

PATIENT
  Age: 45 Year
  Sex: Female
  Weight: 83.5 kg

DRUGS (11)
  1. SEROQUEL [Suspect]
     Indication: BIPOLAR DISORDER
     Route: 048
     Dates: end: 20050401
  2. DURAGESIC-100 [Concomitant]
  3. PERCOCET [Concomitant]
  4. SOMAZAPAM [Concomitant]
  5. ROBAXIN [Concomitant]
  6. RANITIDINE [Concomitant]
  7. LITHIUM [Concomitant]
  8. AMITRIPTYLINE [Concomitant]
  9. BENTYL [Concomitant]
  10. GLUCOSAMINE [Concomitant]
  11. ISOFLAVINS [Concomitant]

REACTIONS (5)
  - APHASIA [None]
  - BLOOD GLUCOSE INCREASED [None]
  - DYSTONIA [None]
  - THINKING ABNORMAL [None]
  - VISUAL ACUITY REDUCED [None]
